FAERS Safety Report 4508807-7 (Version None)
Quarter: 2004Q4

REPORT INFORMATION
  Report Type: 
  Country: None (occurrence: None)
  Receive Date: 20041123
  Receipt Date: 20040817
  Transmission Date: 20050328
  Serious: No
  Sender: FDA-Public Use
  Company Number: US-GLAXOSMITHKLINE-A0522480A

PATIENT
  Age: 25 Year
  Sex: Male

DRUGS (5)
  1. WELLBUTRIN SR [Suspect]
     Indication: DEPRESSION
     Dosage: 150MG TWICE PER DAY
     Route: 048
     Dates: start: 20020701
  2. WELLBUTRIN [Suspect]
     Indication: DEPRESSION
     Dosage: 150MG PER DAY
     Route: 048
  3. BLOOD THINNER [Concomitant]
  4. ULTRAM [Concomitant]
  5. CELEBREX [Concomitant]

REACTIONS (3)
  - DENTAL CARIES [None]
  - INSOMNIA [None]
  - SALIVARY HYPERSECRETION [None]
